FAERS Safety Report 6792541-7 (Version None)
Quarter: 2010Q2

REPORT INFORMATION
  Report Type: 
  Country: None (occurrence: None)
  Receive Date: 20100624
  Receipt Date: 20080826
  Transmission Date: 20101027
  Serious: Yes (Other)
  Sender: FDA-Public Use
  Company Number: US-PFIZER INC-2008065883

PATIENT
  Sex: Female
  Weight: 89.8 kg

DRUGS (5)
  1. SOLU-MEDROL [Suspect]
     Indication: MULTIPLE SCLEROSIS RELAPSE
     Route: 042
     Dates: start: 20080311, end: 20080316
  2. REBIF [Suspect]
     Indication: MULTIPLE SCLEROSIS
     Dosage: 3 EVERY 1 WEEKSFREQUENCY: 3 IN 1 WEEKS
     Route: 058
     Dates: start: 20030920
  3. PROVIGIL [Concomitant]
     Indication: FATIGUE
  4. ZOLOFT [Concomitant]
     Indication: CATAPLEXY
  5. WELLBUTRIN [Concomitant]
     Indication: CATAPLEXY

REACTIONS (1)
  - OSTEONECROSIS [None]
